FAERS Safety Report 16260565 (Version 1)
Quarter: 2019Q2

REPORT INFORMATION
  Report Type: Spontaneous
  Country: US (occurrence: US)
  Receive Date: 20190430
  Receipt Date: 20190430
  Transmission Date: 20190711
  Serious: Yes (Death)
  Sender: FDA-Public Use
  Company Number: None

PATIENT
  Sex: Male
  Weight: 74.8 kg

DRUGS (18)
  1. INLYTA [Suspect]
     Active Substance: AXITINIB
     Indication: RENAL CANCER
     Route: 048
     Dates: start: 20190313, end: 20190430
  2. FUROSEMIDE. [Concomitant]
     Active Substance: FUROSEMIDE
  3. WELLBUTRIN [Concomitant]
     Active Substance: BUPROPION HYDROCHLORIDE
  4. PROCHLORPERAZINE. [Concomitant]
     Active Substance: PROCHLORPERAZINE
  5. LUMIGAN [Concomitant]
     Active Substance: BIMATOPROST
  6. VENTOLIN [Concomitant]
     Active Substance: ALBUTEROL SULFATE
  7. ATORVASTATIN [Concomitant]
     Active Substance: ATORVASTATIN
  8. VITAMIN D3 [Concomitant]
     Active Substance: CHOLECALCIFEROL
  9. FOLIC ACID. [Concomitant]
     Active Substance: FOLIC ACID
  10. ISOSORBIDE MONONITRATE ER [Concomitant]
     Active Substance: ISOSORBIDE MONONITRATE
  11. METOPROLOL. [Concomitant]
     Active Substance: METOPROLOL
  12. MIRALAX [Concomitant]
     Active Substance: POLYETHYLENE GLYCOL 3350
  13. REMERON [Concomitant]
     Active Substance: MIRTAZAPINE
  14. DIAZEPAM. [Concomitant]
     Active Substance: DIAZEPAM
  15. SENOKOT [Concomitant]
     Active Substance: SENNOSIDES
  16. ASPIRIN. [Concomitant]
     Active Substance: ASPIRIN
  17. CALCITRIOL. [Concomitant]
     Active Substance: CALCITRIOL
  18. PANTOPRAZOLE [Concomitant]
     Active Substance: PANTOPRAZOLE

REACTIONS (1)
  - Death [None]
